FAERS Safety Report 6701475-5 (Version None)
Quarter: 2010Q2

REPORT INFORMATION
  Report Type: 
  Country: None (occurrence: None)
  Receive Date: 20100427
  Receipt Date: 20100412
  Transmission Date: 20101027
  Serious: Yes (Death)
  Sender: FDA-Public Use
  Company Number: 2010S1000033

PATIENT
  Age: 2 Month
  Sex: Male

DRUGS (1)
  1. INOMAX [Suspect]
     Indication: PULMONARY HYPERTENSION
     Dosage: 20 PPM; CONT;INH
     Route: 055
     Dates: start: 20100407, end: 20100411

REACTIONS (1)
  - GENERAL PHYSICAL HEALTH DETERIORATION [None]
